FAERS Safety Report 8878294 (Version 1)
Quarter: 2012Q4

REPORT INFORMATION
  Report Type: Report from Study
  Country: JP (occurrence: JP)
  Receive Date: 20121030
  Receipt Date: 20121030
  Transmission Date: 20130627
  Serious: Yes (Hospitalization)
  Sender: FDA-Public Use
  Company Number: JP-VERTEX PHARMACEUTICAL INC.-AE-2012-004354

PATIENT
  Age: 78 Year
  Sex: Male

DRUGS (10)
  1. VX-950 [Suspect]
     Indication: HEPATITIS C
     Dosage: 2250 mg, qd
     Route: 048
     Dates: start: 20120312, end: 20120319
  2. PEGINTRON                          /01543001/ [Suspect]
     Indication: HEPATITIS C
     Route: 058
     Dates: start: 20120312, end: 20120319
  3. REBETOL [Suspect]
     Indication: HEPATITIS C
     Dosage: 600 mg, qd
     Route: 048
     Dates: start: 20120312, end: 20120319
  4. NESINA [Concomitant]
     Dosage: 25 mg, qd
     Route: 048
     Dates: end: 20120403
  5. NESINA [Concomitant]
     Dosage: 12.5 mg, qd
     Route: 048
     Dates: start: 20120404
  6. ADALAT CR [Concomitant]
     Dosage: 20 mg, qd
     Route: 048
  7. GASTER [Concomitant]
     Dosage: 40 mg, qd
     Route: 048
  8. MAGMITT [Concomitant]
     Dosage: 750 mg, qd
     Route: 048
  9. RHYTHMY [Concomitant]
     Dosage: 1 DF, qd
     Route: 048
  10. DIOVAN [Concomitant]
     Dosage: 80 mg, qd
     Route: 048

REACTIONS (1)
  - Renal failure acute [Not Recovered/Not Resolved]
